FAERS Safety Report 6357288-X (Version None)
Quarter: 2009Q3

REPORT INFORMATION
  Report Type: 
  Country: None (occurrence: None)
  Receive Date: 20090916
  Receipt Date: 20090904
  Transmission Date: 20100115
  Serious: Yes (Other)
  Sender: FDA-Public Use
  Company Number: PHEH2009US10467

PATIENT
  Sex: Female

DRUGS (3)
  1. RECLAST [Suspect]
     Indication: OSTEOPOROSIS
     Dosage: 5 MG, UNK
     Dates: start: 20090801, end: 20090801
  2. LOESTRIN 1.5/30 [Concomitant]
     Indication: MENSTRUATION IRREGULAR
     Dosage: UNK, DAILY
     Route: 065
  3. ANAPROX [Concomitant]
     Indication: DYSMENORRHOEA
     Dosage: UNK, AS NEEDED
     Route: 065

REACTIONS (7)
  - AGGRESSION [None]
  - CONVULSION [None]
  - CORNEAL ABRASION [None]
  - INFLUENZA LIKE ILLNESS [None]
  - INTENTIONAL SELF-INJURY [None]
  - IRRITABILITY [None]
  - RESTLESSNESS [None]
